FAERS Safety Report 8931638 (Version 2)
Quarter: 2012Q4

REPORT INFORMATION
  Report Type: 
  Country: JP (occurrence: JP)
  Receive Date: 20121128
  Receipt Date: 20121212
  Transmission Date: 20130627
  Serious: Yes (Other)
  Sender: FDA-Public Use
  Company Number: JP-PFIZER INC-2012291496

PATIENT
  Age: 72 Year
  Sex: Male

DRUGS (5)
  1. REVATIO [Suspect]
     Indication: PULMONARY HYPERTENSION
     Dosage: 20 mg/day
     Route: 048
     Dates: start: 20120501, end: 20120506
  2. REVATIO [Interacting]
     Dosage: 40 mg/day
     Route: 048
     Dates: start: 20120507, end: 20120514
  3. REVATIO [Interacting]
     Dosage: 60 mg/day
     Route: 048
     Dates: start: 20120515
  4. CLARITHROMYCIN [Interacting]
     Dosage: 800 mg/day
     Route: 048
     Dates: start: 20120512, end: 20120518
  5. RIFAMPICIN [Interacting]
     Dosage: 450 mg/daily
     Route: 048
     Dates: start: 20120512, end: 20120518

REACTIONS (3)
  - Drug interaction [Recovering/Resolving]
  - Pulmonary hypertension [Recovering/Resolving]
  - Drug ineffective [Unknown]
